FAERS Safety Report 12159140 (Version 1)
Quarter: 2016Q1

REPORT INFORMATION
  Report Type: Spontaneous
  Country: None (occurrence: CN)
  Receive Date: 20160308
  Receipt Date: 20160308
  Transmission Date: 20160526
  Serious: Yes (Hospitalization)
  Sender: FDA-Public Use
  Company Number: CN-MERCK KGAA-1048778

PATIENT

DRUGS (1)
  1. NOVOTHYROX [Suspect]
     Active Substance: LEVOTHYROXINE SODIUM

REACTIONS (7)
  - Menstrual disorder [None]
  - Skin striae [None]
  - Urinary tract infection [None]
  - Weight increased [None]
  - Menopause [None]
  - Lacrimation increased [None]
  - Feeling hot [None]
